FAERS Safety Report 15522681 (Version 1)
Quarter: 2018Q4

REPORT INFORMATION
  Report Type: Spontaneous
  Country: US (occurrence: US)
  Receive Date: 20181013
  Receipt Date: 20181013
  Transmission Date: 20190205
  Serious: Yes (Hospitalization, Disabling)
  Sender: FDA-Public Use
  Company Number: None

PATIENT
  Age: 52 Year
  Sex: Female
  Weight: 55.35 kg

DRUGS (3)
  1. AIMOVIG [Suspect]
     Active Substance: ERENUMAB-AOOE
     Indication: MIGRAINE
     Dosage: ?          QUANTITY:1 INJECTION(S);OTHER FREQUENCY:MONTHLY;?
     Route: 061
     Dates: start: 20180925
  2. ZOMIG [Concomitant]
     Active Substance: ZOLMITRIPTAN
  3. EXCEDRIN [Concomitant]
     Active Substance: ACETAMINOPHEN\ASPIRIN\CAFFEINE

REACTIONS (18)
  - Abdominal pain [None]
  - Dizziness [None]
  - Chest pain [None]
  - Feeling abnormal [None]
  - Insomnia [None]
  - Fatigue [None]
  - Migraine [None]
  - Lymphadenopathy [None]
  - Oropharyngeal pain [None]
  - Bedridden [None]
  - Decreased activity [None]
  - Nausea [None]
  - Myalgia [None]
  - Cyst [None]
  - Decreased appetite [None]
  - Product complaint [None]
  - Drug ineffective [None]
  - Weight decreased [None]

NARRATIVE: CASE EVENT DATE: 20180926
